FAERS Safety Report 4675175-X (Version None)
Quarter: 2005Q2

REPORT INFORMATION
  Report Type: 
  Country: None (occurrence: None)
  Receive Date: 20050526
  Receipt Date: 20050506
  Transmission Date: 20051028
  Serious: Yes (Life-Threatening, Other)
  Sender: FDA-Public Use
  Company Number: 2005067271

PATIENT
  Age: 48 Year
  Sex: Female
  Weight: 113.3993 kg

DRUGS (17)
  1. DEPO-PROVERA [Suspect]
     Indication: ENDOMETRIOSIS
     Dosage: SEE IMAGE
     Dates: start: 19940101, end: 19940101
  2. CELEBREX [Suspect]
     Indication: ASTHENIA
     Dates: start: 20001101
  3. OXYCONTIN [Concomitant]
  4. VERAPAMIL [Concomitant]
  5. LOTENSIN HCT (BENAZEPRIL HYDROCHLORIDE, HYDROCHLOROTHIAZIDE) [Concomitant]
  6. DULOXETINE HYDROCHLORIDE (DULOXETINE HYDROCHLORIDE) [Concomitant]
  7. PROVIGIL [Concomitant]
  8. ZEPHREX (GUAIFENESIN, PSEUDOEPHEDRINE HYDROCHLORIDE) [Concomitant]
  9. BENADRYL [Concomitant]
  10. NEXIUM [Concomitant]
  11. TYLENOL W/ CODEINE [Concomitant]
  12. SOMA [Concomitant]
  13. VALIUM [Concomitant]
  14. ESTROGEN NOS (ESTROGEN NOS) [Concomitant]
  15. DARVOCET (DEXTROPROPOXYPHENE NAPSILATE, PARACETAMOL) [Concomitant]
  16. MECLIZINE [Concomitant]
  17. PYRIDIUM (PHENAZOPYRIDINE HYDROCHLORIDE) [Concomitant]

REACTIONS (21)
  - ABASIA [None]
  - ARTHRALGIA [None]
  - CERVICAL SPINAL STENOSIS [None]
  - CHRONIC FATIGUE SYNDROME [None]
  - CONSTIPATION [None]
  - DRUG INEFFECTIVE [None]
  - ENDOMETRIOSIS [None]
  - FIBROMYALGIA [None]
  - GASTROOESOPHAGEAL REFLUX DISEASE [None]
  - HAEMATOMA [None]
  - HYPERTENSION [None]
  - INTERVERTEBRAL DISC DEGENERATION [None]
  - INTERVERTEBRAL DISC PROTRUSION [None]
  - LUMBAR SPINAL STENOSIS [None]
  - MENINGEAL NEOPLASM [None]
  - PAIN IN EXTREMITY [None]
  - SKULL FRACTURE [None]
  - SLEEP APNOEA SYNDROME [None]
  - SPEECH DISORDER [None]
  - TREMOR [None]
  - VERTIGO [None]
